FAERS Safety Report 15436366 (Version 1)
Quarter: 2018Q3

REPORT INFORMATION
  Report Type: Spontaneous
  Country: US (occurrence: US)
  Receive Date: 20180927
  Receipt Date: 20180927
  Transmission Date: 20181010
  Serious: No
  Sender: FDA-Public Use
  Company Number: US-PFIZER INC-2018388301

PATIENT
  Age: 34 Year
  Sex: Male
  Weight: 88.45 kg

DRUGS (2)
  1. LYRICA [Suspect]
     Active Substance: PREGABALIN
     Indication: NEURALGIA
     Dosage: 200 MG, 3X/DAY
     Route: 048
  2. LYRICA [Suspect]
     Active Substance: PREGABALIN
     Indication: SPINAL CORD INJURY
     Dosage: 100 MG, UNK
     Route: 048

REACTIONS (4)
  - Feeling abnormal [Recovered/Resolved]
  - Intentional product misuse [Unknown]
  - Drug effect incomplete [Recovering/Resolving]
  - Anger [Unknown]
